FAERS Safety Report 21617434 (Version 1)
Quarter: 2022Q4

REPORT INFORMATION
  Report Type: Spontaneous
  Country: CN (occurrence: CN)
  Receive Date: 20221119
  Receipt Date: 20221119
  Transmission Date: 20230113
  Serious: Yes (Hospitalization, Other)
  Sender: FDA-Public Use
  Company Number: None

PATIENT
  Age: 75 Year
  Sex: Male
  Weight: 50 kg

DRUGS (7)
  1. CYCLOPHOSPHAMIDE [Suspect]
     Active Substance: CYCLOPHOSPHAMIDE
     Indication: Chemotherapy
     Dosage: 1190 MG, QD, DOSAGE FORM: INJECTION (DILUTED WITH 0.9% SODIUM CHLORIDE INJECTION 500 ML)
     Route: 041
     Dates: start: 20221003, end: 20221003
  2. SODIUM CHLORIDE [Suspect]
     Active Substance: SODIUM CHLORIDE
     Indication: Medication dilution
     Dosage: 500 ML, QD (USED TO DILUTE CYCLOPHOSPHAMIDE 1190 MG)
     Route: 041
     Dates: start: 20221003, end: 20221003
  3. SODIUM CHLORIDE [Suspect]
     Active Substance: SODIUM CHLORIDE
     Dosage: 100 ML, QD (USED TO DILUTE PIRARUBICIN 80 MG)
     Route: 041
     Dates: start: 20221003, end: 20221003
  4. SODIUM CHLORIDE [Suspect]
     Active Substance: SODIUM CHLORIDE
     Dosage: 100 ML, QD (USED TO DILUTE VINCRISTINE 2 MG)
     Route: 041
     Dates: start: 20221003, end: 20221003
  5. PIRARUBICIN HYDROCHLORIDE [Suspect]
     Active Substance: PIRARUBICIN HYDROCHLORIDE
     Indication: Chemotherapy
     Dosage: 80 MG, QD (DILUTED WITH 5% SODIUM CHLORIDE INJECTION 100 ML)
     Route: 041
     Dates: start: 20221003, end: 20221003
  6. VINCRISTINE SULFATE [Suspect]
     Active Substance: VINCRISTINE SULFATE
     Indication: Chemotherapy
     Dosage: 2 MG, QD (DILUTED WITH 0.9% SODIUM CHLORIDE INJECTION 100 ML)
     Route: 041
     Dates: start: 20221003, end: 20221003
  7. PREDNISOLONE ACETATE [Concomitant]
     Active Substance: PREDNISOLONE ACETATE
     Indication: Chemotherapy
     Dosage: 100 MG, QD
     Route: 048
     Dates: start: 20221003, end: 20221007

REACTIONS (1)
  - Myelosuppression [Recovering/Resolving]

NARRATIVE: CASE EVENT DATE: 20221011
